FAERS Safety Report 25244547 (Version 1)
Quarter: 2025Q2

REPORT INFORMATION
  Report Type: Spontaneous
  Country: DE (occurrence: DE)
  Receive Date: 20250428
  Receipt Date: 20250428
  Transmission Date: 20250716
  Serious: No
  Sender: ALKEM
  Company Number: DE-ALKEM LABORATORIES LIMITED-DE-ALKEM-2024-26102

PATIENT

DRUGS (4)
  1. SIROLIMUS [Interacting]
     Active Substance: SIROLIMUS
     Indication: Tuberous sclerosis complex
     Route: 065
  2. SIROLIMUS [Interacting]
     Active Substance: SIROLIMUS
     Indication: Seizure
  3. CENOBAMATE [Interacting]
     Active Substance: CENOBAMATE
     Indication: Tuberous sclerosis complex
     Route: 065
  4. CENOBAMATE [Interacting]
     Active Substance: CENOBAMATE
     Indication: Seizure

REACTIONS (2)
  - Drug level decreased [Unknown]
  - Drug interaction [Unknown]
